FAERS Safety Report 8798567 (Version 1)
Quarter: 2012Q4

REPORT INFORMATION
  Report Type: 
  Country: US (occurrence: US)
  Receive Date: 20120920
  Receipt Date: 20120920
  Transmission Date: 20130627
  Serious: Yes (Disabling, Other)
  Sender: FDA-Public Use
  Company Number: US-009507513-1204USA00037

PATIENT

DRUGS (2)
  1. FOSAMAX [Suspect]
     Indication: OSTEOPENIA
     Dosage: 10 mg, qd
     Route: 048
     Dates: start: 1999, end: 2010
  2. FOSAMAX [Suspect]
     Indication: OSTEOPOROSIS
     Dosage: 70 mg, UNK
     Route: 048
     Dates: start: 20060425, end: 2008

REACTIONS (25)
  - Femur fracture [Unknown]
  - Intramedullary rod insertion [Unknown]
  - Femur fracture [Unknown]
  - Malignant melanoma [Unknown]
  - Fracture delayed union [Unknown]
  - Low turnover osteopathy [Unknown]
  - Internal fixation of fracture [Unknown]
  - Fracture nonunion [Unknown]
  - Depression [Unknown]
  - Anxiety [Unknown]
  - Pain [Unknown]
  - Prostate cancer [Unknown]
  - Skin neoplasm excision [Unknown]
  - Osteoarthritis [Unknown]
  - Fall [Unknown]
  - Osteoarthritis [Unknown]
  - Meniscus injury [Recovering/Resolving]
  - Muscle atrophy [Unknown]
  - Incision site haematoma [Unknown]
  - Incision site cellulitis [Recovering/Resolving]
  - Arthroscopy [Recovering/Resolving]
  - Wound drainage [Recovering/Resolving]
  - Device failure [Unknown]
  - Hypertension [Unknown]
  - Device failure [Unknown]
